FAERS Safety Report 9620286 (Version 1)
Quarter: 2013Q4

REPORT INFORMATION
  Report Type: Spontaneous
  Country: US (occurrence: US)
  Receive Date: 20131014
  Receipt Date: 20131014
  Transmission Date: 20140711
  Serious: No
  Sender: FDA-Public Use
  Company Number: US-ALLERGAN-1302319US

PATIENT
  Age: 58 Year
  Sex: Female

DRUGS (6)
  1. ALPHAGAN P [Suspect]
     Indication: GLAUCOMA
     Dosage: 2 GTT, UNK
     Route: 047
     Dates: start: 2011, end: 20130207
  2. TIMOPTIC IN OCUDOSE [Concomitant]
     Indication: GLAUCOMA
     Dosage: 2 GTT, UNK
     Route: 047
     Dates: start: 2010
  3. RESTASIS [Concomitant]
     Indication: DRY EYE
     Dosage: 2 GTT, BID
     Route: 047
     Dates: start: 2006
  4. BLINK                              /00582501/ [Concomitant]
     Indication: DRY EYE
     Dosage: 2 GTT, UNK
     Route: 047
     Dates: start: 2010
  5. PRESERVATIVE FREE REFRESH NOS [Concomitant]
     Indication: DRY EYE
     Dosage: 2 GTT, UNK
     Route: 047
     Dates: start: 2010
  6. ESTROGEN [Suspect]
     Indication: HORMONE REPLACEMENT THERAPY
     Dosage: UNK UNK, QD
     Route: 048
     Dates: start: 2003

REACTIONS (5)
  - Cardiac flutter [Recovered/Resolved]
  - Inappropriate schedule of drug administration [Unknown]
  - Eye pain [Recovered/Resolved]
  - Conjunctivitis allergic [Recovered/Resolved]
  - Ocular hyperaemia [Recovered/Resolved]
